FAERS Safety Report 17196168 (Version 1)
Quarter: 2019Q4

REPORT INFORMATION
  Report Type: Spontaneous
  Country: US (occurrence: US)
  Receive Date: 20191224
  Receipt Date: 20191224
  Transmission Date: 20200122
  Serious: Yes (Death, Hospitalization)
  Sender: FDA-Public Use
  Company Number: US-TEVA-2019-US-1157459

PATIENT
  Age: 20 Year
  Sex: Male

DRUGS (1)
  1. FENTANYL. [Suspect]
     Active Substance: FENTANYL
     Dosage: INHALATION/NASAL, FORM OF ADMINISTRATION:UNKNOWN
     Route: 065

REACTIONS (4)
  - Accidental exposure to product [Fatal]
  - Cardiac arrest [Unknown]
  - Toxicity to various agents [Fatal]
  - Unresponsive to stimuli [Unknown]
